FAERS Safety Report 7764920-2 (Version None)
Quarter: 2011Q3

REPORT INFORMATION
  Report Type: 
  Country: None (occurrence: None)
  Receive Date: 20110921
  Receipt Date: 20110912
  Transmission Date: 20111222
  Serious: Yes (Other)
  Sender: FDA-Public Use
  Company Number: JP-JNJFOC-20110904431

PATIENT

DRUGS (2)
  1. LOPERAMIDE HCL [Suspect]
     Indication: DIARRHOEA
     Dosage: 2 CAPSULES PER DAY TWICE DAILY
     Route: 048
  2. VELCADE [Suspect]
     Indication: MULTIPLE MYELOMA
     Route: 042
     Dates: start: 20110831

REACTIONS (2)
  - DIARRHOEA [None]
  - DRUG INEFFECTIVE [None]
